FAERS Safety Report 14937266 (Version 1)
Quarter: 2018Q2

REPORT INFORMATION
  Report Type: Spontaneous
  Country: US (occurrence: US)
  Receive Date: 20180525
  Receipt Date: 20180525
  Transmission Date: 20180711
  Serious: Yes (Death, Hospitalization)
  Sender: FDA-Public Use
  Company Number: US-WEST-WARD PHARMACEUTICALS CORP.-US-H14001-18-04295

PATIENT
  Age: 30 Day
  Sex: Female
  Weight: 2.72 kg

DRUGS (2)
  1. METHADONE [Suspect]
     Active Substance: METHADONE HYDROCHLORIDE
     Indication: PRODUCT USED FOR UNKNOWN INDICATION
     Route: 065
  2. NO DRUG NAME [Suspect]
     Active Substance: UNSPECIFIED INGREDIENT

REACTIONS (4)
  - Unresponsive to stimuli [Fatal]
  - Cardiac arrest neonatal [Fatal]
  - Toxicity to various agents [Fatal]
  - Exposure during pregnancy [Recovered/Resolved]
